FAERS Safety Report 21105172 (Version 1)
Quarter: 2022Q3

REPORT INFORMATION
  Report Type: Spontaneous
  Country: KR (occurrence: KR)
  Receive Date: 20220720
  Receipt Date: 20220720
  Transmission Date: 20221027
  Serious: Yes (Hospitalization, Other)
  Sender: FDA-Public Use
  Company Number: KR-009507513-2207KOR006052

PATIENT
  Sex: Female

DRUGS (1)
  1. KEYTRUDA [Suspect]
     Active Substance: PEMBROLIZUMAB
     Indication: Non-small cell lung cancer stage IIIA
     Dosage: UNK
     Dates: start: 20190618, end: 20210624

REACTIONS (6)
  - Hyperglycaemic crisis [Unknown]
  - Non-small cell lung cancer recurrent [Unknown]
  - Eating disorder [Unknown]
  - Drug eruption [Unknown]
  - Seborrhoeic keratosis [Unknown]
  - Aspartate aminotransferase increased [Unknown]

NARRATIVE: CASE EVENT DATE: 20210301
